FAERS Safety Report 6913556-1 (Version None)
Quarter: 2010Q3

REPORT INFORMATION
  Report Type: 
  Country: None (occurrence: None)
  Receive Date: 20100719
  Receipt Date: 20090310
  Transmission Date: 20110219
  Serious: No
  Sender: FDA-Public Use
  Company Number: 2009-01072

PATIENT
  Age: 67 Year
  Sex: Female
  Weight: 74.8435 kg

DRUGS (8)
  1. ZICAM COLD REMEDY CHEWABLES [Suspect]
     Dosage: QID X 2 DAYS
     Dates: start: 20090307, end: 20090309
  2. AFRIN [Concomitant]
  3. CLARIITIN D [Concomitant]
  4. LEVOXYL [Concomitant]
  5. GEMFIBROZIL [Concomitant]
  6. ATENOLOL [Concomitant]
  7. SIMVASTATIN [Concomitant]
  8. LISINOPRIL [Concomitant]

REACTIONS (3)
  - AGEUSIA [None]
  - ANOSMIA [None]
  - NAUSEA [None]
